FAERS Safety Report 7765462-0 (Version None)
Quarter: 2011Q3

REPORT INFORMATION
  Report Type: 
  Country: None (occurrence: None)
  Receive Date: 20110921
  Receipt Date: 20110909
  Transmission Date: 20111222
  Serious: Yes (Life-Threatening, Hospitalization)
  Sender: FDA-Public Use
  Company Number: DK-PFIZER INC-2008072907

PATIENT
  Age: 34 Year
  Sex: Female
  Weight: 65 kg

DRUGS (10)
  1. ACICLODAN [Interacting]
  2. ONDANSETRON HCL [Interacting]
  3. DEXAMETHASONE [Interacting]
  4. CYTARABINE [Suspect]
  5. NOXAFIL [Interacting]
     Indication: HEPATOSPLENIC CANDIDIASIS
     Dosage: 400 MG/ML, 2X/DAY
     Route: 048
     Dates: start: 20071019, end: 20080125
  6. ETOPOSIDE [Interacting]
  7. VOGALENE [Interacting]
  8. PANTOPRAZOLE [Interacting]
  9. POTASSIUM CHLORIDE [Interacting]
     Dosage: 750 MG, UNK
  10. ALLOPURINOL [Interacting]
     Dosage: UNK
     Route: 048

REACTIONS (2)
  - SINOATRIAL BLOCK [None]
  - DRUG INTERACTION [None]
